FAERS Safety Report 17466848 (Version 1)
Quarter: 2020Q1

REPORT INFORMATION
  Report Type: Spontaneous
  Country: US (occurrence: US)
  Receive Date: 20200214
  Receipt Date: 20200214
  Transmission Date: 20200409
  Serious: Yes (Other)
  Sender: FDA-Public Use
  Company Number: None

PATIENT
  Age: 65 Year
  Sex: Female

DRUGS (15)
  1. OPSUMIT [Suspect]
     Active Substance: MACITENTAN
     Indication: PULMONARY ARTERIAL HYPERTENSION
     Route: 048
     Dates: start: 201608
  2. SILDENAFIL. [Concomitant]
     Active Substance: SILDENAFIL
  3. ALLOPURINOL. [Concomitant]
     Active Substance: ALLOPURINOL
  4. FAMOTIDINE. [Concomitant]
     Active Substance: FAMOTIDINE
  5. FIDAXOMICIN [Concomitant]
     Active Substance: FIDAXOMICIN
  6. ANTACID-ANTIGAS [Concomitant]
  7. SPIRONOLACTONE. [Concomitant]
     Active Substance: SPIRONOLACTONE
  8. COLCHICINE. [Concomitant]
     Active Substance: COLCHICINE
  9. SUCRALFATE. [Concomitant]
     Active Substance: SUCRALFATE
  10. BENADRYL [Concomitant]
     Active Substance: DIPHENHYDRAMINE HYDROCHLORIDE
  11. TORASEMIDE [Concomitant]
     Active Substance: TORSEMIDE
  12. LEVOTHYROXINE. [Concomitant]
     Active Substance: LEVOTHYROXINE
  13. QUESTRAN [Concomitant]
     Active Substance: CHOLESTYRAMINE
  14. ALBUTEROL HFA [Concomitant]
     Active Substance: ALBUTEROL SULFATE
  15. VELETRI [Concomitant]
     Active Substance: EPOPROSTENOL

REACTIONS (2)
  - Diarrhoea [None]
  - Clostridium difficile infection [None]

NARRATIVE: CASE EVENT DATE: 20200203
